FAERS Safety Report 12250474 (Version 1)
Quarter: 2016Q2

REPORT INFORMATION
  Report Type: Spontaneous
  Country: US (occurrence: US)
  Receive Date: 20160408
  Receipt Date: 20160408
  Transmission Date: 20160815
  Serious: No
  Sender: FDA-Public Use
  Company Number: US-PERRIGO-15US004951

PATIENT
  Age: 92 Year
  Sex: Male
  Weight: 72.56 kg

DRUGS (2)
  1. BENZOYL PEROXIDE. [Concomitant]
     Active Substance: BENZOYL PEROXIDE
     Indication: SKIN NEOPLASM EXCISION
     Dosage: 1 APPLICATION, QD
     Route: 061
     Dates: start: 20150508, end: 20150509
  2. GENTAMICIN SULFATE. [Suspect]
     Active Substance: GENTAMICIN SULFATE
     Indication: SKIN NEOPLASM EXCISION
     Dosage: 1 GENEROUS APPLICATION, QD
     Route: 061
     Dates: start: 20150508

REACTIONS (2)
  - Off label use [Unknown]
  - No adverse event [Recovered/Resolved]

NARRATIVE: CASE EVENT DATE: 20150508
